FAERS Safety Report 18694451 (Version 1)
Quarter: 2021Q1

REPORT INFORMATION
  Report Type: Report from Study
  Country: GB (occurrence: GB)
  Receive Date: 20210104
  Receipt Date: 20210104
  Transmission Date: 20210419
  Serious: Yes (Other)
  Sender: FDA-Public Use
  Company Number: NVSC2020GB340220

PATIENT
  Age: 60 Year
  Sex: Male

DRUGS (1)
  1. ENTRESTO [Suspect]
     Active Substance: SACUBITRIL\VALSARTAN
     Indication: CARDIAC FAILURE
     Dosage: 1 DF, BID
     Route: 048
     Dates: start: 20200709

REACTIONS (15)
  - Visual impairment [Recovering/Resolving]
  - Muscle spasms [Recovering/Resolving]
  - Cerebral haemorrhage [Unknown]
  - Confusional state [Recovering/Resolving]
  - Spinal flattening [Recovering/Resolving]
  - Subdural haematoma [Unknown]
  - Degenerative bone disease [Unknown]
  - Amnesia [Recovering/Resolving]
  - Fall [Recovering/Resolving]
  - Intervertebral disc disorder [Unknown]
  - Fracture [Unknown]
  - Dyspnoea [Recovering/Resolving]
  - Ligament calcification [Unknown]
  - Brain contusion [Unknown]
  - Loss of consciousness [Recovering/Resolving]

NARRATIVE: CASE EVENT DATE: 20201125
